FAERS Safety Report 7177807-3 (Version None)
Quarter: 2010Q4

REPORT INFORMATION
  Report Type: 
  Country: None (occurrence: None)
  Receive Date: 20101123
  Receipt Date: 20100806
  Transmission Date: 20110411
  Serious: No
  Sender: FDA-Public Use
  Company Number: 016880

PATIENT
  Sex: Female
  Weight: 59 kg

DRUGS (4)
  1. CIMZIA [Suspect]
     Indication: CROHN'S DISEASE
     Dosage: (2 SHOTS, EVERY 4 WEEKS, SUBCUTANEOUS)
     Route: 058
     Dates: start: 20100301
  2. PREDNISONE [Concomitant]
  3. IMURAN [Concomitant]
  4. WARFARIN [Concomitant]

REACTIONS (6)
  - CHAPPED LIPS [None]
  - COUGH [None]
  - HERPES SIMPLEX [None]
  - LIP DRY [None]
  - LIP SWELLING [None]
  - NASAL CONGESTION [None]
